FAERS Safety Report 8601605-4 (Version None)
Quarter: 2012Q3

REPORT INFORMATION
  Report Type: 
  Country: None (occurrence: None)
  Receive Date: 20120817
  Receipt Date: 20111229
  Transmission Date: 20120928
  Serious: No
  Sender: FDA-Public Use
  Company Number: US-BRISTOL-MYERS SQUIBB COMPANY-16298762

PATIENT
  Age: 67 Year
  Sex: Female
  Weight: 90 kg

DRUGS (12)
  1. LEVOTHYROXINE SODIUM [Concomitant]
  2. LIPITOR [Concomitant]
  3. VITAMIN D [Concomitant]
  4. LISINOPRIL [Concomitant]
  5. ALAVERT [Concomitant]
  6. SPRYCEL [Suspect]
     Indication: CHRONIC MYELOID LEUKAEMIA
     Dates: start: 20110909
  7. CALCIUM [Concomitant]
  8. PAROXETINE [Concomitant]
  9. FUROSEMIDE [Concomitant]
  10. DEXLANSOPRAZOLE [Concomitant]
  11. MULTI-VITAMIN [Concomitant]
  12. RALOXIFENE HYDROCHLORIDE [Concomitant]

REACTIONS (1)
  - FLATULENCE [None]
